FAERS Safety Report 22717047 (Version 3)
Quarter: 2025Q2

REPORT INFORMATION
  Report Type: Spontaneous
  Country: US (occurrence: US)
  Receive Date: 20230718
  Receipt Date: 20250501
  Transmission Date: 20250717
  Serious: Yes (Hospitalization)
  Sender: PFIZER
  Company Number: US-PFIZER INC-202300249547

PATIENT
  Age: 63 Year
  Sex: Female

DRUGS (21)
  1. IBRANCE [Suspect]
     Active Substance: PALBOCICLIB
     Route: 048
     Dates: start: 20230210
  2. IBRANCE [Suspect]
     Active Substance: PALBOCICLIB
  3. GABAPENTIN [Concomitant]
     Active Substance: GABAPENTIN
  4. OMEPRAZOLE [Concomitant]
     Active Substance: OMEPRAZOLE
  5. OZEMPIC [Concomitant]
     Active Substance: SEMAGLUTIDE
  6. CLONIDINE [Concomitant]
     Active Substance: CLONIDINE
  7. COQ10 + D3 [Concomitant]
  8. HUMALOG [Concomitant]
     Active Substance: INSULIN LISPRO
  9. HYDROCHLOROTHIAZIDE [Concomitant]
     Active Substance: HYDROCHLOROTHIAZIDE
  10. FLUTICASONE [Concomitant]
     Active Substance: FLUTICASONE
  11. GLIPIZIDE [Concomitant]
     Active Substance: GLIPIZIDE
  12. VITAMIN C [Concomitant]
     Active Substance: ASCORBIC ACID
  13. CARVEDILOL [Concomitant]
     Active Substance: CARVEDILOL
  14. LANTUS [Concomitant]
     Active Substance: INSULIN GLARGINE
  15. CRESTOR [Concomitant]
     Active Substance: ROSUVASTATIN CALCIUM
  16. PREDNISONE [Concomitant]
     Active Substance: PREDNISONE
  17. MAGNESIUM OXIDE [Concomitant]
     Active Substance: MAGNESIUM OXIDE
  18. ASPIRIN [Concomitant]
     Active Substance: ASPIRIN
  19. BACTRIM [Concomitant]
     Active Substance: SULFAMETHOXAZOLE\TRIMETHOPRIM
  20. VITAMIN D3 [Concomitant]
     Active Substance: CHOLECALCIFEROL
  21. LETROZOLE [Concomitant]
     Active Substance: LETROZOLE

REACTIONS (6)
  - Bacteraemia [Recovering/Resolving]
  - Neutrophil count decreased [Recovering/Resolving]
  - Urinary tract infection [Recovering/Resolving]
  - Laboratory test abnormal [Unknown]
  - White blood cell count decreased [Unknown]
  - Off label use [Unknown]

NARRATIVE: CASE EVENT DATE: 20230701
